FAERS Safety Report 5388988-6 (Version None)
Quarter: 2007Q3

REPORT INFORMATION
  Report Type: 
  Country: None (occurrence: None)
  Receive Date: 20070717
  Receipt Date: 20070711
  Transmission Date: 20080115
  Serious: Yes (Life-Threatening, Disabling, Other)
  Sender: FDA-Public Use
  Company Number: PHEH2007US09820

PATIENT
  Age: 56 Year
  Sex: Female

DRUGS (2)
  1. DIOVAN [Suspect]
     Indication: HYPERTENSION
     Dosage: UNK, QD
     Route: 048
     Dates: start: 20040101, end: 20070701
  2. FLUOXETINE [Concomitant]
     Indication: MOOD SWINGS
     Dosage: 20 MG, QOD

REACTIONS (15)
  - ABASIA [None]
  - ALOPECIA [None]
  - ARTHRALGIA [None]
  - ARTHRITIS [None]
  - CHEST DISCOMFORT [None]
  - DRY SKIN [None]
  - DYSPNOEA [None]
  - GAIT DISTURBANCE [None]
  - HYPERHIDROSIS [None]
  - INSOMNIA [None]
  - PAIN IN EXTREMITY [None]
  - SKIN EXFOLIATION [None]
  - STRESS [None]
  - THYROID DISORDER [None]
  - THYROIDECTOMY [None]
